FAERS Safety Report 9042569 (Version 1)
Quarter: 2013Q1

REPORT INFORMATION
  Report Type: Report from Study
  Country: US (occurrence: US)
  Receive Date: 20130129
  Receipt Date: 20130129
  Transmission Date: 20140127
  Serious: Yes (Hospitalization)
  Sender: FDA-Public Use
  Company Number: US-ABBOTT-12P-163-0905759-00

PATIENT
  Age: 13 Year
  Sex: Female

DRUGS (2)
  1. HUMIRA 40 MG/0.8 ML PEN [Suspect]
     Indication: CROHN^S DISEASE
     Dates: start: 20111215
  2. HUMIRA 40 MG/0.8 ML PEN [Suspect]
     Dosage: 1 IN 1 WEEK FOR 3 WEEKS

REACTIONS (3)
  - Muscle spasms [Unknown]
  - Diarrhoea haemorrhagic [Unknown]
  - Drug effect decreased [Unknown]
